FAERS Safety Report 9110804 (Version 2)
Quarter: 2014Q1

REPORT INFORMATION
  Report Type: Spontaneous
  Country: US (occurrence: US)
  Receive Date: 20130219
  Receipt Date: 20140213
  Transmission Date: 20141002
  Serious: Yes (Other)
  Sender: FDA-Public Use
  Company Number: US-BRISTOL-MYERS SQUIBB COMPANY-17202854

PATIENT
  Age: 63 Year
  Sex: Female
  Weight: 45.8 kg

DRUGS (2)
  1. ORENCIA [Suspect]
     Indication: RHEUMATOID ARTHRITIS
     Dosage: 1DF:500MG-12NOV12,30NOV3012?STOP:30NOV12
     Route: 042
     Dates: start: 20121115, end: 20121130
  2. ARAVA [Suspect]

REACTIONS (1)
  - Ophthalmic herpes simplex [Recovered/Resolved]
